FAERS Safety Report 8462103-4 (Version None)
Quarter: 2012Q2

REPORT INFORMATION
  Report Type: 
  Country: None (occurrence: None)
  Receive Date: 20120625
  Receipt Date: 20120614
  Transmission Date: 20120825
  Serious: Yes (Hospitalization)
  Sender: FDA-Public Use
  Company Number: PE-JNJFOC-20120600591

PATIENT
  Age: 72 Year
  Sex: Female

DRUGS (4)
  1. REMICADE [Suspect]
     Dosage: 7TH ADMINISTRATION OF INFLIXIMAB
     Route: 042
     Dates: start: 20120508
  2. REMICADE [Suspect]
     Indication: RHEUMATOID ARTHRITIS
     Route: 042
     Dates: start: 20110321
  3. TENORETIC 100 [Concomitant]
     Route: 065
  4. DIOVAN [Concomitant]
     Route: 065

REACTIONS (2)
  - PULMONARY THROMBOSIS [None]
  - ABDOMINAL PAIN UPPER [None]
